FAERS Safety Report 4379223-6 (Version None)
Quarter: 2004Q2

REPORT INFORMATION
  Report Type: 
  Country: None (occurrence: None)
  Receive Date: 20040614
  Receipt Date: 20040528
  Transmission Date: 20050107
  Serious: Yes (Hospitalization)
  Sender: FDA-Public Use
  Company Number: 2003-BP-03698RO

PATIENT
  Age: 71 Year
  Sex: Female
  Weight: 63.5 kg

DRUGS (10)
  1. PREDNISONE [Suspect]
     Indication: ARTERITIS
     Dosage: SEE IMAGE
     Route: 048
     Dates: start: 20030226, end: 20030403
  2. PREDNISONE [Suspect]
     Indication: ARTERITIS
     Dosage: SEE IMAGE
     Route: 048
     Dates: start: 20030403, end: 20030411
  3. PREDNISONE [Suspect]
     Indication: ARTERITIS
     Dosage: SEE IMAGE
     Route: 048
     Dates: start: 20030411, end: 20030502
  4. PREDNISONE [Suspect]
     Indication: ARTERITIS
     Dosage: SEE IMAGE
     Route: 048
     Dates: start: 20030502
  5. ZOLENDRONATE VS PLACEBO (CODE NOT BROKEN) [Suspect]
     Indication: OSTEOPOROSIS
     Dosage: BLINDED THERAPY
     Dates: start: 20021112
  6. CALCIUM (CALCIUM) [Concomitant]
  7. VITAMIN D [Concomitant]
  8. CARDIZEM [Concomitant]
  9. SLO-NIACIN (NICOTINIC ACID) [Concomitant]
  10. ASPIRIN [Concomitant]

REACTIONS (4)
  - CONVULSION [None]
  - DYSPNOEA [None]
  - TEMPORAL ARTERITIS [None]
  - TREMOR [None]
